FAERS Safety Report 5338410-0 (Version None)
Quarter: 2007Q2

REPORT INFORMATION
  Report Type: 
  Country: None (occurrence: None)
  Receive Date: 20070530
  Receipt Date: 20070521
  Transmission Date: 20071010
  Serious: Yes (Hospitalization)
  Sender: FDA-Public Use
  Company Number: US-ELI_LILLY_AND_COMPANY-US200705005244

PATIENT
  Age: 68 Year
  Sex: Female
  Weight: 71.201 kg

DRUGS (4)
  1. BYETTA [Suspect]
     Indication: DIABETES MELLITUS NON-INSULIN-DEPENDENT
     Dosage: 5 UG, 2/D
     Route: 058
     Dates: start: 20060101, end: 20061201
  2. BYETTA [Suspect]
     Dosage: 10 UG, 2/D
     Route: 058
     Dates: start: 20061201
  3. METFORMIN HCL [Concomitant]
     Indication: DIABETES MELLITUS NON-INSULIN-DEPENDENT
     Dosage: 1000 MG, UNKNOWN
     Route: 048
     Dates: start: 20061201
  4. AVANDIA [Concomitant]
     Indication: DIABETES MELLITUS NON-INSULIN-DEPENDENT
     Dosage: 4 MG, DAILY (1/D)
     Route: 048
     Dates: start: 20061201

REACTIONS (7)
  - BLOOD COUNT ABNORMAL [None]
  - BLOOD GLUCOSE DECREASED [None]
  - CHOLELITHIASIS [None]
  - COLON CANCER [None]
  - DECREASED APPETITE [None]
  - NAUSEA [None]
  - WEIGHT DECREASED [None]
